FAERS Safety Report 13907573 (Version 1)
Quarter: 2017Q3

REPORT INFORMATION
  Report Type: Spontaneous
  Country: US (occurrence: US)
  Receive Date: 20170825
  Receipt Date: 20170825
  Transmission Date: 20171127
  Serious: No
  Sender: FDA-Public Use
  Company Number: US-ROCHE-1110885

PATIENT
  Sex: Female

DRUGS (2)
  1. PROTROPIN [Suspect]
     Active Substance: SOMATREM
     Indication: PRODUCT USED FOR UNKNOWN INDICATION
     Route: 065
  2. NUTROPIN AQ [Suspect]
     Active Substance: SOMATROPIN
     Indication: GONADAL DYSGENESIS
     Route: 065

REACTIONS (4)
  - Growth accelerated [Unknown]
  - Pain [Unknown]
  - Scoliosis [Unknown]
  - Growth retardation [Unknown]
